FAERS Safety Report 19535428 (Version 1)
Quarter: 2021Q3

REPORT INFORMATION
  Report Type: Spontaneous
  Country: PL (occurrence: PL)
  Receive Date: 20210713
  Receipt Date: 20210713
  Transmission Date: 20211014
  Serious: Yes (Hospitalization)
  Sender: FDA-Public Use
  Company Number: PL-MYLANLABS-2021M1040682

PATIENT
  Age: 42 Year
  Sex: Female
  Weight: 106 kg

DRUGS (1)
  1. KLACID [Suspect]
     Active Substance: CLARITHROMYCIN
     Indication: PRODUCT USED FOR UNKNOWN INDICATION
     Dosage: 1.5 GRAM, BID
     Route: 042
     Dates: start: 20180423, end: 20180424

REACTIONS (4)
  - Infusion related reaction [Unknown]
  - Malaise [Unknown]
  - Dysgeusia [Unknown]
  - Nausea [Unknown]

NARRATIVE: CASE EVENT DATE: 20180424
